FAERS Safety Report 6592441-1 (Version None)
Quarter: 2010Q1

REPORT INFORMATION
  Report Type: 
  Country: None (occurrence: None)
  Receive Date: 20100221
  Receipt Date: 20091012
  Transmission Date: 20100710
  Serious: No
  Sender: FDA-Public Use
  Company Number: US-ALLERGAN-0914165US

PATIENT
  Age: 46 Year
  Sex: Female

DRUGS (3)
  1. BOTOX COSMETIC [Suspect]
     Indication: SKIN WRINKLING
     Dosage: 37 UNITS, SINGLE
     Route: 030
  2. BOTOX COSMETIC [Suspect]
  3. BOTOX COSMETIC [Suspect]
     Dosage: 35 UNK, SINGLE
     Route: 030

REACTIONS (1)
  - DRUG INEFFECTIVE [None]
